FAERS Safety Report 15812914 (Version 2)
Quarter: 2020Q3

REPORT INFORMATION
  Report Type: Report from Study
  Country: US (occurrence: US)
  Receive Date: 20190111
  Receipt Date: 20190212
  Transmission Date: 20201105
  Serious: Yes (Hospitalization, Other)
  Sender: FDA-Public Use
  Company Number: US-MYLANLABS-2019M1001567

PATIENT
  Age: 19 Year
  Sex: Male
  Weight: 62 kg

DRUGS (7)
  1. TALAZOPARIB. [Suspect]
     Active Substance: TALAZOPARIB
     Dosage: 500 MICROGRAM, BID
     Route: 048
     Dates: start: 20181130
  2. CEFIXIME. [Concomitant]
     Active Substance: CEFIXIME
     Indication: PROPHYLAXIS AGAINST DIARRHOEA
     Dosage: UNK
     Dates: start: 20181129
  3. TEMOZOLOMIDE. [Suspect]
     Active Substance: TEMOZOLOMIDE
     Indication: EWING^S SARCOMA
     Dosage: 20 MILLIGRAM, CYCLE (DAYS 2?6 EVENRY 3 WEEKS)
     Route: 048
     Dates: start: 20181130
  4. TALAZOPARIB. [Suspect]
     Active Substance: TALAZOPARIB
     Indication: EWING^S SARCOMA
     Dosage: 500 MICROGRAM, BID
     Route: 048
     Dates: start: 20181129
  5. IRINOTECAN HCL [Suspect]
     Active Substance: IRINOTECAN HYDROCHLORIDE
     Indication: EWING^S SARCOMA
     Dosage: 70 MILLIGRAM, QD ON DAYS 2?6
     Route: 042
     Dates: start: 20181130
  6. SEPTRA [Concomitant]
     Active Substance: SULFAMETHOXAZOLE\TRIMETHOPRIM
     Indication: ANTIFUNGAL PROPHYLAXIS
     Dosage: UNK
     Dates: start: 20181119
  7. TALAZOPARIB. [Suspect]
     Active Substance: TALAZOPARIB
     Dosage: 1000 MICROGRAM, QD,2?6 WEEKS
     Route: 048
     Dates: start: 20181130

REACTIONS (2)
  - Colitis [Recovered/Resolved]
  - Febrile neutropenia [Recovered/Resolved]

NARRATIVE: CASE EVENT DATE: 20181209
